FAERS Safety Report 22135928 (Version 1)
Quarter: 2023Q1

REPORT INFORMATION
  Report Type: Spontaneous
  Country: US (occurrence: US)
  Receive Date: 20230324
  Receipt Date: 20230324
  Transmission Date: 20230417
  Serious: No
  Sender: FDA-Public Use
  Company Number: US-THERATECHNOLOGIES INC.-2023-THE-TES-000067

PATIENT

DRUGS (1)
  1. EGRIFTA SV [Suspect]
     Active Substance: TESAMORELIN ACETATE
     Indication: Lipodystrophy acquired
     Dosage: 0.35 MG, QD
     Route: 058
     Dates: start: 20230214

REACTIONS (8)
  - Vision blurred [Recovering/Resolving]
  - Feeling abnormal [Unknown]
  - Hot flush [Recovering/Resolving]
  - Abnormal dreams [Recovering/Resolving]
  - Pain [Unknown]
  - Night sweats [Unknown]
  - Arthralgia [Recovering/Resolving]
  - Injection site pain [Recovering/Resolving]

NARRATIVE: CASE EVENT DATE: 20230301
